FAERS Safety Report 13911621 (Version 1)
Quarter: 2017Q3

REPORT INFORMATION
  Report Type: Spontaneous
  Country: US (occurrence: US)
  Receive Date: 20170828
  Receipt Date: 20170828
  Transmission Date: 20171127
  Serious: No
  Sender: FDA-Public Use
  Company Number: US-ROCHE-1145741

PATIENT
  Sex: Male
  Weight: 47 kg

DRUGS (1)
  1. NUTROPIN AQ [Suspect]
     Active Substance: SOMATROPIN
     Indication: GROWTH HORMONE DEFICIENCY
     Dosage: 1 ML
     Route: 058
     Dates: start: 199910

REACTIONS (3)
  - Presyncope [Unknown]
  - Injection site bruising [Unknown]
  - Injection site pain [Unknown]
